FAERS Safety Report 8050792-8 (Version None)
Quarter: 2012Q1

REPORT INFORMATION
  Report Type: 
  Country: None (occurrence: None)
  Receive Date: 20120117
  Receipt Date: 20120109
  Transmission Date: 20120608
  Serious: Yes (Death, Hospitalization, Other)
  Sender: FDA-Public Use
  Company Number: US-MPIJNJ-2011-06561

PATIENT
  Sex: Male
  Weight: 90.703 kg

DRUGS (3)
  1. VELCADE [Suspect]
     Indication: MULTIPLE MYELOMA
     Dosage: 1.3 UNK, CYCLIC
     Route: 042
     Dates: start: 20100806, end: 20110811
  2. COUMADIN [Concomitant]
     Indication: DEEP VEIN THROMBOSIS
  3. THALIDOMIDE [Concomitant]
     Indication: MULTIPLE MYELOMA

REACTIONS (11)
  - ABDOMINAL COMPARTMENT SYNDROME [None]
  - INTESTINAL ISCHAEMIA [None]
  - SMALL INTESTINAL OBSTRUCTION [None]
  - CLOSTRIDIUM DIFFICILE COLITIS [None]
  - SEPSIS SYNDROME [None]
  - ANAEMIA [None]
  - UMBILICAL HERNIA, OBSTRUCTIVE [None]
  - INGUINAL HERNIA [None]
  - SLEEP APNOEA SYNDROME [None]
  - DEPRESSION [None]
  - CHOLECYSTITIS [None]
